FAERS Safety Report 9399725 (Version 3)
Quarter: 2014Q3

REPORT INFORMATION
  Report Type: Spontaneous
  Country: US (occurrence: US)
  Receive Date: 20130715
  Receipt Date: 20140917
  Transmission Date: 20150326
  Serious: Yes (Other)
  Sender: FDA-Public Use
  Company Number: US-TEVA-417059USA

PATIENT
  Age: 40 Year
  Sex: Male

DRUGS (2)
  1. QNASL [Suspect]
     Active Substance: BECLOMETHASONE DIPROPIONATE
     Dates: start: 20130625
  2. AFRIN [Concomitant]
     Active Substance: OXYMETAZOLINE

REACTIONS (1)
  - Nasal septum perforation [Not Recovered/Not Resolved]

NARRATIVE: CASE EVENT DATE: 20130625
